FAERS Safety Report 12412515 (Version 1)
Quarter: 2016Q2

REPORT INFORMATION
  Report Type: Spontaneous
  Country: US (occurrence: US)
  Receive Date: 20160527
  Receipt Date: 20160527
  Transmission Date: 20160815
  Serious: Yes (Other)
  Sender: FDA-Public Use
  Company Number: US-G+W LABS-GW2015US000004

PATIENT

DRUGS (2)
  1. TRIAMCINOLONE ACETONIDE. [Suspect]
     Active Substance: TRIAMCINOLONE ACETONIDE
     Indication: SKIN LESION
     Dosage: UNK
     Route: 061
     Dates: start: 20150520, end: 20150604
  2. CLOBETASOL PROPIONATE. [Suspect]
     Active Substance: CLOBETASOL PROPIONATE
     Indication: SKIN LESION
     Dosage: UNK
     Route: 061
     Dates: start: 20150520, end: 20150606

REACTIONS (5)
  - Drug ineffective for unapproved indication [Unknown]
  - Off label use [Unknown]
  - Precancerous cells present [Unknown]
  - Hysterectomy [Unknown]
  - Erythema [Unknown]

NARRATIVE: CASE EVENT DATE: 2015
